FAERS Safety Report 4379136-X (Version None)
Quarter: 2004Q2

REPORT INFORMATION
  Report Type: 
  Country: None (occurrence: None)
  Receive Date: 20040615
  Receipt Date: 20040602
  Transmission Date: 20050107
  Serious: Yes (Other)
  Sender: FDA-Public Use
  Company Number: 001680

PATIENT
  Sex: Female

DRUGS (3)
  1. MEDROXYPROGESTERONE ACETATE [Suspect]
     Dosage: ORAL
     Route: 048
     Dates: start: 19990101, end: 20020101
  2. ESTRADIOL [Suspect]
     Dates: start: 19990101, end: 20020101
  3. CYCRIN [Suspect]

REACTIONS (1)
  - BREAST CANCER FEMALE [None]
